FAERS Safety Report 6108510-6 (Version None)
Quarter: 2009Q1

REPORT INFORMATION
  Report Type: 
  Country: None (occurrence: None)
  Receive Date: 20090309
  Receipt Date: 20090225
  Transmission Date: 20090719
  Serious: Yes (Hospitalization, Other)
  Sender: FDA-Public Use
  Company Number: US-PFIZER INC-2008070763

PATIENT
  Age: 74 Year
  Sex: Female

DRUGS (10)
  1. PREGABALIN [Suspect]
     Indication: NEURALGIA
     Route: 048
  2. LISINOPRIL [Concomitant]
  3. FUROSEMIDE [Concomitant]
  4. WARFARIN SODIUM [Concomitant]
  5. HYDROXYCHLOROQUINE SULFATE [Concomitant]
  6. RABEPRAZOLE SODIUM [Concomitant]
  7. LORAZEPAM [Concomitant]
  8. CITALOPRAM [Concomitant]
  9. DOCUSATE [Concomitant]
  10. FERROUS SULFATE TAB [Concomitant]

REACTIONS (1)
  - CARDIAC FAILURE [None]
